FAERS Safety Report 20474771 (Version 4)
Quarter: 2022Q1

REPORT INFORMATION
  Report Type: Report from Study
  Country: CN (occurrence: CN)
  Receive Date: 20220215
  Receipt Date: 20220321
  Transmission Date: 20220424
  Serious: Yes (Life-Threatening, Hospitalization)
  Sender: FDA-Public Use
  Company Number: CN-GLAXOSMITHKLINE-CN2022GSK026527

PATIENT
  Age: 46 Year
  Sex: Female
  Weight: 46.7 kg

DRUGS (4)
  1. NIRAPARIB [Suspect]
     Active Substance: NIRAPARIB
     Indication: Gastric cancer
     Dosage: 200 MG, QD
     Route: 048
     Dates: start: 20220105, end: 20220126
  2. NIRAPARIB [Suspect]
     Active Substance: NIRAPARIB
     Indication: Triple negative breast cancer
  3. TEBOTELIMAB [Suspect]
     Active Substance: TEBOTELIMAB
     Indication: Triple negative breast cancer
     Dosage: 600 MG, Z-ONCE EVERY 14 DAYS
     Route: 042
     Dates: start: 20220105, end: 20220105
  4. TEBOTELIMAB [Suspect]
     Active Substance: TEBOTELIMAB
     Indication: Gastric cancer
     Dosage: 600 MG, Z-ONCE EVERY 14 DAYS
     Route: 042
     Dates: start: 20220119, end: 20220119

REACTIONS (3)
  - Febrile neutropenia [Recovered/Resolved]
  - White blood cell count decreased [Recovered/Resolved]
  - Platelet count decreased [Recovered/Resolved]

NARRATIVE: CASE EVENT DATE: 20220126
